FAERS Safety Report 21346113 (Version 4)
Quarter: 2022Q4

REPORT INFORMATION
  Report Type: Spontaneous
  Country: US (occurrence: US)
  Receive Date: 20220917
  Receipt Date: 20221015
  Transmission Date: 20230112
  Serious: Yes (Other)
  Sender: FDA-Public Use
  Company Number: US-UNITED THERAPEUTICS-UNT-2022-020490

PATIENT
  Sex: Female
  Weight: 71.655 kg

DRUGS (8)
  1. REMODULIN [Suspect]
     Active Substance: TREPROSTINIL
     Indication: Pulmonary arterial hypertension
     Dosage: 0.020 ?G/KG, CONTINUING (PRE-FILLED WITH 2.2 ML PER CASSETTE; RATE OF 17 MCL PER HOUR)
     Route: 058
     Dates: start: 20220831
  2. REMODULIN [Suspect]
     Active Substance: TREPROSTINIL
     Dosage: UNK, CONTINUING
     Route: 058
     Dates: start: 2022
  3. REMODULIN [Suspect]
     Active Substance: TREPROSTINIL
     Dosage: UNK, CONTINUING (INCREASED DOSE)
     Route: 058
     Dates: start: 20220908
  4. REMODULIN [Suspect]
     Active Substance: TREPROSTINIL
     Dosage: 0.022 ?G/KG, CONTINUING (PRE-FILLED WITH 2.2 ML PER CASSETTE; PUMP RATE 19 MCL PER HOUR)
     Route: 058
     Dates: start: 2022
  5. REMODULIN [Suspect]
     Active Substance: TREPROSTINIL
     Dosage: 0.026 ?G/KG, CONTINUING (PRE-FILLED WITH 2.4 ML PER CASSETTE; PUMP RATE 22 MCL PER HOUR)
     Route: 058
     Dates: start: 2022
  6. REMODULIN [Suspect]
     Active Substance: TREPROSTINIL
     Dosage: 0.028 ?G/KG, CONTINUING (PRE-FILLED WITH 2.4 ML PER CASSETTE; PUMP RATE 24 MCL PER HOUR)
     Route: 058
     Dates: start: 2022
  7. LASIX [Suspect]
     Active Substance: FUROSEMIDE
     Indication: Ascites
     Dosage: 80 MG
     Route: 065
  8. LASIX [Suspect]
     Active Substance: FUROSEMIDE
     Dosage: 50 MG
     Route: 065
     Dates: start: 20220910

REACTIONS (19)
  - Ascites [Unknown]
  - Weight increased [Unknown]
  - Malaise [Unknown]
  - Infusion site erythema [Recovering/Resolving]
  - Infusion site pain [Unknown]
  - Device leakage [Recovered/Resolved]
  - Device dislocation [Recovered/Resolved]
  - Dyspnoea [Unknown]
  - Device wireless communication issue [Unknown]
  - Device failure [Unknown]
  - Pain in extremity [Unknown]
  - Headache [Unknown]
  - Nausea [Not Recovered/Not Resolved]
  - Limb discomfort [Unknown]
  - Vomiting [Unknown]
  - Incorrect dose administered [Unknown]
  - Infusion site discomfort [Not Recovered/Not Resolved]
  - Infusion site mass [Not Recovered/Not Resolved]
  - Infusion site swelling [Unknown]

NARRATIVE: CASE EVENT DATE: 20220101
